FAERS Safety Report 13873543 (Version 3)
Quarter: 2017Q3

REPORT INFORMATION
  Report Type: Spontaneous
  Country: US (occurrence: US)
  Receive Date: 20170816
  Receipt Date: 20170929
  Transmission Date: 20171127
  Serious: Yes (Hospitalization, Other)
  Sender: FDA-Public Use
  Company Number: US-LUNDBECK-DKLU2035660

PATIENT
  Age: 66 Year
  Sex: Male

DRUGS (10)
  1. NORTHERA [Interacting]
     Active Substance: DROXIDOPA
     Dosage: TITRATION COMPLETE
     Route: 048
     Dates: start: 20161122
  2. NEUPRO [Concomitant]
     Active Substance: ROTIGOTINE
     Route: 062
  3. NORTHERA [Interacting]
     Active Substance: DROXIDOPA
     Indication: PARKINSON^S DISEASE
     Dosage: NOT TITRATING
     Route: 065
     Dates: start: 201611
  4. NORTHERA [Interacting]
     Active Substance: DROXIDOPA
     Route: 065
  5. NORTHERA [Interacting]
     Active Substance: DROXIDOPA
     Route: 048
     Dates: start: 20170218
  6. NORTHERA [Interacting]
     Active Substance: DROXIDOPA
     Dosage: TITRATION COMPLETE
     Route: 048
     Dates: start: 20161122
  7. NORTHERA [Suspect]
     Active Substance: DROXIDOPA
     Indication: ORTHOSTATIC HYPOTENSION
     Route: 048
     Dates: start: 20161117
  8. NORTHERA [Interacting]
     Active Substance: DROXIDOPA
     Dosage: NOT TITRATING
     Route: 065
     Dates: start: 201611
  9. SINEMET [Interacting]
     Active Substance: CARBIDOPA\LEVODOPA
     Indication: PRODUCT USED FOR UNKNOWN INDICATION
     Route: 065
     Dates: start: 2017
  10. NEUPRO [Concomitant]
     Active Substance: ROTIGOTINE
     Route: 062

REACTIONS (11)
  - Urinary tract infection [Recovering/Resolving]
  - Loss of consciousness [Unknown]
  - Drug interaction [Unknown]
  - Drug ineffective [Unknown]
  - Thrombosis [Unknown]
  - Blood pressure decreased [Unknown]
  - Seizure [Unknown]
  - Blood pressure fluctuation [Unknown]
  - Pneumonia [Unknown]
  - Decreased activity [Unknown]
  - Therapeutic response decreased [Unknown]

NARRATIVE: CASE EVENT DATE: 2017
